FAERS Safety Report 13961286 (Version 1)
Quarter: 2017Q3

REPORT INFORMATION
  Report Type: Report from Study
  Country: US (occurrence: US)
  Receive Date: 20170912
  Receipt Date: 20170912
  Transmission Date: 20171128
  Serious: Yes (Hospitalization)
  Sender: FDA-Public Use
  Company Number: US-BAYER-2017-168965

PATIENT

DRUGS (1)
  1. GADOLINIUM [Suspect]
     Active Substance: GADOLINIUM
     Dosage: UNK UNK, ONCE
     Dates: start: 200401, end: 200401

REACTIONS (4)
  - Headache [Not Recovered/Not Resolved]
  - Thyroid disorder [None]
  - Arthralgia [None]
  - Confusional state [Not Recovered/Not Resolved]
